FAERS Safety Report 5471678-9 (Version None)
Quarter: 2007Q3

REPORT INFORMATION
  Report Type: 
  Country: None (occurrence: None)
  Receive Date: 20070928
  Receipt Date: 20070323
  Transmission Date: 20080115
  Serious: No
  Sender: FDA-Public Use
  Company Number: US-BRISTOL-MYERS SQUIBB COMPANY-13726583

PATIENT
  Age: 64 Year
  Sex: Male

DRUGS (1)
  1. DEFINITY [Suspect]
     Indication: STRESS ECHOCARDIOGRAM
     Route: 040

REACTIONS (3)
  - FLUSHING [None]
  - HEADACHE [None]
  - SKIN WARM [None]
